FAERS Safety Report 16162449 (Version 2)
Quarter: 2025Q3

REPORT INFORMATION
  Report Type: Spontaneous
  Country: EU (occurrence: EU)
  Receive Date: 20190405
  Receipt Date: 20250804
  Transmission Date: 20251020
  Serious: Yes (Hospitalization, Other)
  Sender: AUROBINDO
  Company Number: EU-AUROBINDO-AUR-APL-2019-017862

PATIENT
  Age: 73 Year
  Sex: Male

DRUGS (4)
  1. GLICLAZIDE [Suspect]
     Active Substance: GLICLAZIDE
     Indication: Diabetes mellitus
     Route: 065
  2. METFORMIN [Suspect]
     Active Substance: METFORMIN HYDROCHLORIDE
     Indication: Diabetes mellitus
     Route: 065
  3. METHOTREXATE [Concomitant]
     Active Substance: METHOTREXATE
     Indication: Product used for unknown indication
     Route: 065
  4. INSULIN NOS [Concomitant]
     Active Substance: INSULIN NOS
     Indication: Product used for unknown indication
     Route: 065

REACTIONS (6)
  - Liver abscess [Recovering/Resolving]
  - Autoimmune pancreatitis [Unknown]
  - Weight decreased [Unknown]
  - Jaundice cholestatic [Unknown]
  - Sepsis [Recovering/Resolving]
  - Metabolic disorder [Unknown]

NARRATIVE: CASE EVENT DATE: 20160101
